FAERS Safety Report 8980364 (Version 4)
Quarter: 2013Q3

REPORT INFORMATION
  Report Type: Spontaneous
  Country: FR (occurrence: FR)
  Receive Date: 20121221
  Receipt Date: 20130807
  Transmission Date: 20140515
  Serious: Yes (Other)
  Sender: FDA-Public Use
  Company Number: PHHY2012FR118144

PATIENT
  Age: 52 Year
  Sex: Female

DRUGS (2)
  1. AMOXICILLIN-CLAVULANIC ACID [Suspect]
     Indication: TONSILLITIS
  2. AMOXICILLIN-CLAVULANIC ACID [Suspect]
     Indication: OROPHARYNGEAL PAIN

REACTIONS (6)
  - Acute febrile neutrophilic dermatosis [Recovered/Resolved]
  - Rash pustular [Recovered/Resolved]
  - Dermatitis bullous [Recovered/Resolved]
  - Pyrexia [Recovered/Resolved]
  - Leukocytosis [Recovered/Resolved]
  - Cholestasis [Recovered/Resolved]
